FAERS Safety Report 7529016-3 (Version None)
Quarter: 2011Q2

REPORT INFORMATION
  Report Type: 
  Country: None (occurrence: None)
  Receive Date: 20110607
  Receipt Date: 20110602
  Transmission Date: 20111010
  Serious: Yes (Death, Hospitalization)
  Sender: FDA-Public Use
  Company Number: US-ASTRAZENECA-2011SE26629

PATIENT
  Age: 65 Year
  Sex: Female
  Weight: 63.1 kg

DRUGS (11)
  1. FASLODEX [Suspect]
     Indication: NON-SMALL CELL LUNG CANCER
     Dosage: 500 MG INTRAMUSCULAR LOADING DOSE DAY 1, FOLLOWED BY 500 MG INTRAMUSCULAR ON DAY 15 AND DAY 29, AND
     Route: 030
     Dates: start: 20100701, end: 20110213
  2. PROZAC [Concomitant]
     Indication: DEPRESSION
     Dates: start: 20100517
  3. TARCEVA [Suspect]
     Indication: NON-SMALL CELL LUNG CANCER
     Dosage: 150 MG ORAL DOSE DAILY FOR TWO WEEKS CYCLE
     Route: 048
     Dates: start: 20100701, end: 20110213
  4. MAGNESIUM SULFATE [Concomitant]
     Indication: MEDICAL DIET
     Dates: start: 20100601
  5. LEVOTHYROXINE SODIUM [Concomitant]
     Indication: HYPOTHYROIDISM
     Dates: start: 19930101
  6. REGLAN [Concomitant]
     Indication: NAUSEA
     Dates: start: 20090601
  7. NORCO [Concomitant]
     Indication: PAIN
     Dates: start: 20100601
  8. WELLBUTRIN [Concomitant]
     Indication: DEPRESSION
     Dates: start: 20100802
  9. COMPAZINE [Concomitant]
     Indication: NAUSEA
     Dates: start: 20081001
  10. PRILOSEC [Concomitant]
     Indication: GASTRITIS
     Dates: start: 20100201
  11. ONDASETRON [Concomitant]
     Indication: NAUSEA
     Dates: start: 20081001

REACTIONS (3)
  - CARDIAC ARREST [None]
  - COMA [None]
  - PNEUMONIA [None]
